FAERS Safety Report 5409210-8 (Version None)
Quarter: 2007Q3

REPORT INFORMATION
  Report Type: 
  Country: None (occurrence: None)
  Receive Date: 20070807
  Receipt Date: 20070807
  Transmission Date: 20080115
  Serious: Yes (Other)
  Sender: FDA-Public Use
  Company Number: None

PATIENT
  Age: 51 Year
  Sex: Male
  Weight: 76.2043 kg

DRUGS (1)
  1. LEVAQUIN [Suspect]
     Indication: BRONCHITIS
     Dosage: 500MG QD X 10D PO
     Route: 048
     Dates: start: 20070702, end: 20070712

REACTIONS (2)
  - PAIN IN EXTREMITY [None]
  - PRODUCTIVE COUGH [None]
